FAERS Safety Report 18910216 (Version 1)
Quarter: 2021Q1

REPORT INFORMATION
  Report Type: Spontaneous
  Country: US (occurrence: US)
  Receive Date: 20210218
  Receipt Date: 20210218
  Transmission Date: 20210420
  Serious: Yes (Disabling, Other)
  Sender: FDA-Public Use
  Company Number: None

PATIENT
  Age: 68 Year
  Sex: Female
  Weight: 46.8 kg

DRUGS (4)
  1. ALENDRONATE SODIUM, 70 MG TABLET [Suspect]
     Active Substance: ALENDRONATE SODIUM
     Indication: BONE LOSS
     Dosage: ?          QUANTITY:1 TABLET(S);?
     Route: 048
     Dates: start: 20210201, end: 20210202
  2. MULTIVITAMIN [Concomitant]
     Active Substance: VITAMINS
  3. AVONEX [Concomitant]
     Active Substance: INTERFERON BETA-1A
  4. SYNTHROID [Concomitant]
     Active Substance: LEVOTHYROXINE SODIUM

REACTIONS (7)
  - Gastrooesophageal reflux disease [None]
  - Flatulence [None]
  - Eructation [None]
  - Abdominal distension [None]
  - Haematochezia [None]
  - Abdominal pain upper [None]
  - Faeces discoloured [None]

NARRATIVE: CASE EVENT DATE: 20210201
